FAERS Safety Report 10460084 (Version 1)
Quarter: 2014Q3

REPORT INFORMATION
  Report Type: Spontaneous
  Country: US (occurrence: US)
  Receive Date: 20140917
  Receipt Date: 20140917
  Transmission Date: 20150326
  Serious: Yes (Hospitalization, Other)
  Sender: FDA-Public Use
  Company Number: US-ELI_LILLY_AND_COMPANY-US201409003553

PATIENT
  Age: 68 Year
  Sex: Female

DRUGS (12)
  1. NEURONTIN [Concomitant]
     Active Substance: GABAPENTIN
  2. XANAX [Concomitant]
     Active Substance: ALPRAZOLAM
  3. NAPROXEN. [Concomitant]
     Active Substance: NAPROXEN
  4. LOSARTAN [Concomitant]
     Active Substance: LOSARTAN
  5. METOPROLOL [Concomitant]
     Active Substance: METOPROLOL
  6. METFORMIN [Concomitant]
     Active Substance: METFORMIN HYDROCHLORIDE
  7. POTASSIUM [Concomitant]
     Active Substance: POTASSIUM
  8. PROVENTIL                          /00139501/ [Concomitant]
  9. ASPIRIN. [Concomitant]
     Active Substance: ASPIRIN
  10. GLIPIZIDE. [Concomitant]
     Active Substance: GLIPIZIDE
  11. AMLODIPINE [Concomitant]
     Active Substance: AMLODIPINE BESYLATE
  12. HUMULIN 70/30 [Suspect]
     Active Substance: INSULIN HUMAN
     Indication: TYPE 2 DIABETES MELLITUS
     Dosage: UNK
     Dates: start: 2011

REACTIONS (5)
  - Pulmonary hypertension [Unknown]
  - Dyspnoea [Unknown]
  - Sleep apnoea syndrome [Unknown]
  - Weight increased [Unknown]
  - Hernia [Unknown]

NARRATIVE: CASE EVENT DATE: 201303
